FAERS Safety Report 12546820 (Version 6)
Quarter: 2017Q1

REPORT INFORMATION
  Report Type: Report from Study
  Country: None (occurrence: JP)
  Receive Date: 20160711
  Receipt Date: 20170223
  Transmission Date: 20170428
  Serious: Yes (Hospitalization)
  Sender: FDA-Public Use
  Company Number: JP-ABBVIE-16P-087-1669002-00

PATIENT
  Age: 82 Year
  Sex: Female
  Weight: 50 kg

DRUGS (7)
  1. VIEKIRAX [Suspect]
     Active Substance: OMBITASVIR\PARITAPREVIR\RITONAVIR
     Indication: CHRONIC HEPATITIS C
     Route: 048
     Dates: start: 20160525, end: 20160703
  2. ASPIRIN/ LANSOPRAZOLE [Concomitant]
     Indication: SPINAL OSTEOARTHRITIS
     Route: 048
  3. TRICHLORMETHIAZIDE [Concomitant]
     Active Substance: TRICHLORMETHIAZIDE
     Indication: HYPERTENSION
     Route: 048
     Dates: end: 20160914
  4. STRONGER NEO-MINOPHAGEN C,-P [Concomitant]
     Indication: CHRONIC HEPATITIS C
     Dosage: 80 ML/WEEK
     Route: 041
     Dates: end: 20160704
  5. VIEKIRAX [Suspect]
     Active Substance: OMBITASVIR\PARITAPREVIR\RITONAVIR
     Route: 048
     Dates: start: 20160706, end: 20160817
  6. AZILSARTAN [Concomitant]
     Active Substance: AZILSARTAN KAMEDOXOMIL
     Indication: HYPERTENSION
     Route: 048
  7. URSODEOXYCHOLIC ACID [Concomitant]
     Active Substance: URSODIOL
     Indication: CHRONIC HEPATITIS C
     Route: 048
     Dates: end: 20160803

REACTIONS (3)
  - Glomerular filtration rate decreased [Unknown]
  - Calculus urinary [Recovered/Resolved]
  - Pyelonephritis [Recovering/Resolving]

NARRATIVE: CASE EVENT DATE: 201607
